FAERS Safety Report 7821327-7 (Version None)
Quarter: 2011Q4

REPORT INFORMATION
  Report Type: 
  Country: None (occurrence: None)
  Receive Date: 20111018
  Receipt Date: 20110617
  Transmission Date: 20120403
  Serious: No
  Sender: FDA-Public Use
  Company Number: US-ASTRAZENECA-2011SE36996

PATIENT
  Age: 57 Year
  Sex: Male
  Weight: 78.5 kg

DRUGS (1)
  1. SYMBICORT [Suspect]
     Dosage: 160/4.5 MCG DAILY
     Route: 055

REACTIONS (1)
  - ABDOMINAL PAIN UPPER [None]
